FAERS Safety Report 17825599 (Version 4)
Quarter: 2022Q1

REPORT INFORMATION
  Report Type: Spontaneous
  Country: US (occurrence: None)
  Receive Date: 20200526
  Receipt Date: 20220311
  Transmission Date: 20220423
  Serious: Yes (Life-Threatening, Hospitalization, Other)
  Sender: FDA-Public Use
  Company Number: 2020SE66843

PATIENT
  Age: 21283 Day
  Sex: Female
  Weight: 86.2 kg

DRUGS (74)
  1. FARXIGA [Suspect]
     Active Substance: DAPAGLIFLOZIN PROPANEDIOL
     Indication: Type 2 diabetes mellitus
     Route: 048
     Dates: start: 20180518
  2. FARXIGA [Suspect]
     Active Substance: DAPAGLIFLOZIN PROPANEDIOL
     Indication: Type 2 diabetes mellitus
     Route: 048
     Dates: start: 20180808
  3. FARXIGA [Suspect]
     Active Substance: DAPAGLIFLOZIN PROPANEDIOL
     Indication: Type 2 diabetes mellitus
     Route: 048
     Dates: start: 20180912
  4. FARXIGA [Suspect]
     Active Substance: DAPAGLIFLOZIN PROPANEDIOL
     Indication: Type 2 diabetes mellitus
     Route: 048
     Dates: start: 20181214
  5. AUGMENTIN [Concomitant]
     Active Substance: AMOXICILLIN\CLAVULANATE POTASSIUM
  6. ZOFRAN [Concomitant]
     Active Substance: ONDANSETRON HYDROCHLORIDE
  7. COMPAZINE [Concomitant]
     Active Substance: PROCHLORPERAZINE MALEATE
  8. DEMEROL [Concomitant]
     Active Substance: MEPERIDINE HYDROCHLORIDE
  9. NARDIL [Concomitant]
     Active Substance: PHENELZINE SULFATE
  10. APRESOLINE HYDROCHLORIDE [Concomitant]
     Active Substance: HYDRALAZINE HYDROCHLORIDE
  11. ZOSYN [Concomitant]
     Active Substance: PIPERACILLIN SODIUM\TAZOBACTAM SODIUM
  12. GLUCOPHAGE [Concomitant]
     Active Substance: METFORMIN HYDROCHLORIDE
  13. KLOR-CON [Concomitant]
     Active Substance: POTASSIUM CHLORIDE
  14. CLINDAMYCIN [Concomitant]
     Active Substance: CLINDAMYCIN
  15. MIDAZOLAM [Concomitant]
     Active Substance: MIDAZOLAM
  16. LIPITOR [Concomitant]
     Active Substance: ATORVASTATIN CALCIUM
     Route: 065
     Dates: start: 20181224
  17. CELEBREX [Concomitant]
     Active Substance: CELECOXIB
     Route: 065
     Dates: start: 20181224
  18. FLEXERIL [Concomitant]
     Active Substance: CYCLOBENZAPRINE HYDROCHLORIDE
     Route: 065
     Dates: start: 20181224
  19. MONODOX [Concomitant]
     Active Substance: DOXYCYCLINE
     Route: 065
     Dates: start: 20181224
  20. FLONASE [Concomitant]
     Active Substance: FLUTICASONE PROPIONATE
     Route: 065
     Dates: start: 20181224
  21. COZAAR [Concomitant]
     Active Substance: LOSARTAN POTASSIUM
     Route: 065
     Dates: start: 20181224
  22. LISINOPRIL [Concomitant]
     Active Substance: LISINOPRIL
     Route: 065
     Dates: start: 20181224
  23. MORPHINE SULFATE [Concomitant]
     Active Substance: MORPHINE SULFATE
     Route: 065
     Dates: start: 20181224
  24. LANCET [Concomitant]
     Route: 065
     Dates: start: 20181224
  25. VITAMINS [Concomitant]
     Active Substance: VITAMINS
     Route: 065
     Dates: start: 20181224
  26. AZITHROMYCIN ANHYDROUS [Concomitant]
     Active Substance: AZITHROMYCIN ANHYDROUS
     Route: 065
     Dates: start: 20181224
  27. WELLBUTRIN [Concomitant]
     Active Substance: BUPROPION HYDROCHLORIDE
     Route: 065
     Dates: start: 20181224
  28. SODIUM CHLORIDE [Concomitant]
     Active Substance: SODIUM CHLORIDE
     Route: 065
     Dates: start: 20181224
  29. SALINE [Concomitant]
     Active Substance: SODIUM CHLORIDE
     Route: 065
     Dates: start: 20181224
  30. DEXTROSE [Concomitant]
     Active Substance: DEXTROSE
     Route: 065
     Dates: start: 20181224
  31. ISOVUE [Concomitant]
     Active Substance: IOPAMIDOL
     Route: 065
     Dates: start: 20181224
  32. LACTATED RINGERS SOLUTION [Concomitant]
     Active Substance: CALCIUM CHLORIDE\POTASSIUM CHLORIDE\SODIUM CHLORIDE\SODIUM LACTATE
     Route: 065
     Dates: start: 20181224
  33. FENTANYL [Concomitant]
     Active Substance: FENTANYL
     Route: 065
     Dates: start: 20181224
  34. SENOKOT [Concomitant]
     Active Substance: SENNOSIDES
     Route: 065
     Dates: start: 20181224
  35. TYLENOL [Concomitant]
     Active Substance: ACETAMINOPHEN
     Route: 065
     Dates: start: 20181224
  36. SENNA [Concomitant]
     Active Substance: SENNA LEAF\SENNOSIDES\SENNOSIDES A AND B
     Route: 065
     Dates: start: 20181224
  37. MELATONIN [Concomitant]
     Active Substance: MELATONIN
     Route: 065
     Dates: start: 20181224
  38. CEPACOL [Concomitant]
     Active Substance: BENZOCAINE
     Route: 065
     Dates: start: 20181224
  39. TUMS [Concomitant]
     Active Substance: CALCIUM CARBONATE
     Route: 065
     Dates: start: 20181224
  40. POLYETHYLENE GLYCOL [Concomitant]
     Active Substance: POLYETHYLENE GLYCOL
     Route: 065
     Dates: start: 20181224
  41. DILAUDID [Concomitant]
     Active Substance: HYDROMORPHONE HYDROCHLORIDE
     Route: 065
     Dates: start: 20181224
  42. DESONATE [Concomitant]
     Active Substance: DESONIDE
     Route: 065
     Dates: start: 20181224
  43. ADVIL [Concomitant]
     Active Substance: IBUPROFEN
     Route: 065
     Dates: start: 20181224
  44. CLOBETASOL [Concomitant]
     Active Substance: CLOBETASOL
     Route: 065
     Dates: start: 20181224
  45. KEFLEX [Concomitant]
     Active Substance: CEPHALEXIN
     Route: 065
     Dates: start: 20181224
  46. FLUOCINONIDE [Concomitant]
     Active Substance: FLUOCINONIDE
     Route: 065
     Dates: start: 20181224
  47. GLUCOSAMINE SULFATE [Concomitant]
     Active Substance: GLUCOSAMINE SULFATE
     Route: 065
     Dates: start: 20181224
  48. MINOCYCLINE [Concomitant]
     Active Substance: MINOCYCLINE HYDROCHLORIDE
     Route: 065
     Dates: start: 20181224
  49. FLUCONAZOLE [Concomitant]
     Active Substance: FLUCONAZOLE
  50. DIFLORASONE DIACETATE [Concomitant]
     Active Substance: DIFLORASONE DIACETATE
  51. ACETAMINOPHEN\HYDROCODONE [Concomitant]
     Active Substance: ACETAMINOPHEN\HYDROCODONE
     Route: 065
     Dates: start: 20200722
  52. TRAMADOL [Concomitant]
     Active Substance: TRAMADOL
     Route: 065
     Dates: start: 20200810
  53. ZOCOR [Concomitant]
     Active Substance: SIMVASTATIN
  54. BIFLEX [Concomitant]
  55. MAGNESIUM OXIDE [Concomitant]
     Active Substance: MAGNESIUM OXIDE
  56. MINOCYCLINE [Concomitant]
     Active Substance: MINOCYCLINE HYDROCHLORIDE
  57. HYDROMORPHONE [Concomitant]
     Active Substance: HYDROMORPHONE
  58. ONDANSETRON [Concomitant]
     Active Substance: ONDANSETRON
  59. PROPOFOL [Concomitant]
     Active Substance: PROPOFOL
  60. VANCOMYCIN [Concomitant]
     Active Substance: VANCOMYCIN
  61. BENZOCAINE [Concomitant]
     Active Substance: BENZOCAINE
  62. BUPRENORPHINE [Concomitant]
     Active Substance: BUPRENORPHINE
  63. BUPIVACAINE [Concomitant]
     Active Substance: BUPIVACAINE
  64. EPHEDRINE [Concomitant]
     Active Substance: EPHEDRINE
  65. GLYCOPYRROLATE [Concomitant]
     Active Substance: GLYCOPYRROLATE
  66. ROCURONIUM [Concomitant]
     Active Substance: ROCURONIUM BROMIDE
  67. MIDAZOLAM [Concomitant]
     Active Substance: MIDAZOLAM
  68. NEOSTIGMINE [Concomitant]
     Active Substance: NEOSTIGMINE
  69. CLINDAMYCIN [Concomitant]
     Active Substance: CLINDAMYCIN
  70. PIPERACILLIN [Concomitant]
     Active Substance: PIPERACILLIN
  71. HYDROMORPHONE [Concomitant]
     Active Substance: HYDROMORPHONE
  72. CELECOXIB [Concomitant]
     Active Substance: CELECOXIB
  73. DIFLORASONE DIACETATE [Concomitant]
     Active Substance: DIFLORASONE DIACETATE
  74. LOSARTAN [Concomitant]
     Active Substance: LOSARTAN

REACTIONS (11)
  - Fournier^s gangrene [Unknown]
  - Cellulitis [Unknown]
  - Necrotising soft tissue infection [Unknown]
  - Sepsis [Unknown]
  - Systemic inflammatory response syndrome [Unknown]
  - Vulval abscess [Unknown]
  - Anal abscess [Unknown]
  - Sacroiliitis [Unknown]
  - Pustule [Unknown]
  - Perioral dermatitis [Unknown]
  - Psoriasis [Unknown]

NARRATIVE: CASE EVENT DATE: 20150815
